FAERS Safety Report 23753119 (Version 1)
Quarter: 2024Q2

REPORT INFORMATION
  Report Type: Report from Study
  Country: CH (occurrence: CH)
  Receive Date: 20240417
  Receipt Date: 20240417
  Transmission Date: 20240716
  Serious: Yes (Other)
  Sender: FDA-Public Use
  Company Number: CH-JNJFOC-20240429902

PATIENT
  Sex: Female
  Weight: 82 kg

DRUGS (8)
  1. SELEXIPAG [Suspect]
     Active Substance: SELEXIPAG
     Indication: Portal hypertension
     Route: 048
     Dates: start: 20230404, end: 20230415
  2. SELEXIPAG [Suspect]
     Active Substance: SELEXIPAG
     Indication: Pulmonary arterial hypertension
  3. ADCIRCA [Concomitant]
     Active Substance: TADALAFIL
     Indication: Pulmonary arterial hypertension
     Route: 048
     Dates: start: 20170214
  4. MELATONIN [Concomitant]
     Active Substance: MELATONIN
     Indication: Insomnia
     Route: 048
     Dates: start: 20180101
  5. OMEPRAZOLE [Concomitant]
     Active Substance: OMEPRAZOLE
     Indication: Gastrooesophageal reflux prophylaxis
     Route: 048
     Dates: start: 20180101
  6. PREGABALIN [Concomitant]
     Active Substance: PREGABALIN
     Indication: Vasculitis
     Route: 048
     Dates: start: 20180101
  7. SIMVASTATIN [Concomitant]
     Active Substance: SIMVASTATIN
     Indication: Hypercholesterolaemia
     Route: 048
     Dates: start: 20180101
  8. RIVAROXABAN [Concomitant]
     Active Substance: RIVAROXABAN
     Indication: Segmented hyalinising vasculitis
     Route: 048
     Dates: start: 20180101

REACTIONS (1)
  - Segmented hyalinising vasculitis [Recovered/Resolved]

NARRATIVE: CASE EVENT DATE: 20230406
